FAERS Safety Report 24974991 (Version 1)
Quarter: 2025Q1

REPORT INFORMATION
  Report Type: Spontaneous
  Country: FR (occurrence: FR)
  Receive Date: 20250217
  Receipt Date: 20250217
  Transmission Date: 20250408
  Serious: Yes (Other)
  Sender: CSL BEHRING
  Company Number: FR-BEH-2012031595

PATIENT
  Age: 80 Year
  Sex: Female
  Weight: 70 kg

DRUGS (8)
  1. PRIVIGEN [Suspect]
     Active Substance: HUMAN IMMUNOGLOBULIN G
     Indication: Giant cell arteritis
     Dosage: 9 VIALS
     Route: 042
     Dates: start: 20120109, end: 20120213
  2. PRIVIGEN [Suspect]
     Active Substance: HUMAN IMMUNOGLOBULIN G
     Route: 042
  3. NICORANDIL [Concomitant]
     Active Substance: NICORANDIL
  4. AMLODIPINE BESYLATE [Concomitant]
     Active Substance: AMLODIPINE BESYLATE
  5. KARDEGIC [Concomitant]
     Active Substance: ASPIRIN DL-LYSINE
  6. DUPHALAC [Concomitant]
     Active Substance: LACTULOSE
  7. PREDNISONE [Concomitant]
     Active Substance: PREDNISONE
  8. Dermoval [Concomitant]

REACTIONS (15)
  - HTLV-1 test positive [Recovered/Resolved]
  - HTLV-2 test positive [Recovered/Resolved]
  - Motor dysfunction [Not Recovered/Not Resolved]
  - Areflexia [Not Recovered/Not Resolved]
  - Stasis dermatitis [Not Recovered/Not Resolved]
  - Skin ulcer [Not Recovered/Not Resolved]
  - Fatigue [Not Recovered/Not Resolved]
  - Hypoaesthesia [Not Recovered/Not Resolved]
  - Immunisation [Recovered/Resolved]
  - Viral test negative [Recovered/Resolved]
  - HTLV-2 test negative [Recovered/Resolved]
  - HTLV-2 test negative [Recovered/Resolved]
  - Viral test negative [Recovered/Resolved]
  - False positive investigation result [Recovered/Resolved]
  - Product use in unapproved indication [Recovered/Resolved]

NARRATIVE: CASE EVENT DATE: 20120111
